FAERS Safety Report 4937377-4 (Version None)
Quarter: 2006Q1

REPORT INFORMATION
  Report Type: 
  Country: None (occurrence: None)
  Receive Date: 20060306
  Receipt Date: 20060223
  Transmission Date: 20060701
  Serious: No
  Sender: FDA-Public Use
  Company Number: 2006RL000063

PATIENT
  Sex: Male

DRUGS (2)
  1. OMACOR [Suspect]
     Dosage: PO
     Route: 048
  2. AMICAR [Suspect]

REACTIONS (1)
  - MEDICATION ERROR [None]
